FAERS Safety Report 26093917 (Version 1)
Quarter: 2025Q4

REPORT INFORMATION
  Report Type: Spontaneous
  Country: US (occurrence: None)
  Receive Date: 20251126
  Receipt Date: 20251126
  Transmission Date: 20260118
  Serious: Yes (Hospitalization)
  Sender: FDA-CTU
  Company Number: None

PATIENT
  Sex: Male

DRUGS (11)
  1. REVLIMID [Suspect]
     Active Substance: LENALIDOMIDE
     Indication: Diffuse large B-cell lymphoma
     Dosage: OTHER FREQUENCY : DAILY ON DAYS 1-21 OUT OF A 28 DAY CYCLE.;?
     Route: 048
     Dates: start: 20251115
  2. ACETAMINOPHE [Concomitant]
  3. ACYCLOVIR [Concomitant]
     Active Substance: ACYCLOVIR
  4. ASPIRIN [Concomitant]
     Active Substance: ASPIRIN
  5. FINASTERIDE [Concomitant]
     Active Substance: FINASTERIDE
  6. GABAPENTIN [Concomitant]
     Active Substance: GABAPENTIN
  7. LIDODERM  DIS 5% PATCH [Concomitant]
  8. LISINOPRIL AND HYDROCHLOROTHIAZIDE [Concomitant]
     Active Substance: HYDROCHLOROTHIAZIDE\LISINOPRIL
  9. LISINOPRIL [Concomitant]
     Active Substance: LISINOPRIL
  10. MESALAMINE [Concomitant]
     Active Substance: MESALAMINE
  11. NIACINAMIDE [Concomitant]
     Active Substance: NIACINAMIDE

REACTIONS (10)
  - Insomnia [None]
  - Pain [None]
  - Hypoacusis [None]
  - Intentional dose omission [None]
  - Product use issue [None]
  - Constipation [None]
  - Flatulence [None]
  - Diarrhoea [None]
  - Middle insomnia [None]
  - Macular degeneration [None]
